FAERS Safety Report 10409522 (Version 1)
Quarter: 2014Q2

REPORT INFORMATION
  Report Type: Spontaneous
  Country: US (occurrence: None)
  Receive Date: 20140604
  Receipt Date: 20140604
  Transmission Date: 20141212
  Serious: Yes (Other)
  Sender: FDA-Public Use
  Company Number: 163-POMAL-14021510

PATIENT
  Age: 61 Year
  Sex: Female

DRUGS (4)
  1. POMALYST (POMALIDOMIDE) (2 MILLIGRAM, CAPSULES) [Suspect]
     Indication: PLASMA CELL MYELOMA
     Dosage: 4 MG, 21 IN 28 D, PO
     Route: 048
     Dates: start: 20131104
  2. AMOXICILLIN (AMOXICILLIN) [Suspect]
     Indication: NASOPHARYNGITIS
  3. CEFTIN [Suspect]
     Indication: NASOPHARYNGITIS
  4. DEXAMETHASONE (DEXAMETHASONE) [Concomitant]

REACTIONS (3)
  - Abdominal pain upper [None]
  - Diarrhoea [None]
  - Nasopharyngitis [None]
